FAERS Safety Report 8587198-9 (Version None)
Quarter: 2012Q3

REPORT INFORMATION
  Report Type: 
  Country: None (occurrence: None)
  Receive Date: 20120810
  Receipt Date: 20110906
  Transmission Date: 20120928
  Serious: No
  Sender: FDA-Public Use
  Company Number: US-ASTRAZENECA-2011SE09090

PATIENT
  Age: 62 Year
  Sex: Female

DRUGS (1)
  1. ARIMIDEX [Suspect]
     Route: 048

REACTIONS (7)
  - GAIT DISTURBANCE [None]
  - DRUG INTOLERANCE [None]
  - WEIGHT INCREASED [None]
  - TRIGGER FINGER [None]
  - TENDONITIS [None]
  - TENDON DISORDER [None]
  - ARTHROPATHY [None]
